FAERS Safety Report 5778590-6 (Version None)
Quarter: 2008Q2

REPORT INFORMATION
  Report Type: 
  Country: None (occurrence: None)
  Receive Date: 20080618
  Receipt Date: 20080618
  Transmission Date: 20081010
  Serious: Yes (Other)
  Sender: FDA-Public Use
  Company Number: None

PATIENT
  Age: 65 Year
  Sex: Male
  Weight: 114.76 kg

DRUGS (1)
  1. LIPITOR [Suspect]
     Indication: BLOOD TRIGLYCERIDES INCREASED
     Dosage: 80 MG DAILY PO
     Route: 048
     Dates: start: 20080301, end: 20080505

REACTIONS (3)
  - ASTHENIA [None]
  - MYALGIA [None]
  - TENDON PAIN [None]
